FAERS Safety Report 9474961 (Version 1)
Quarter: 2013Q3

REPORT INFORMATION
  Report Type: Spontaneous
  Country: AT (occurrence: AT)
  Receive Date: 20130824
  Receipt Date: 20130824
  Transmission Date: 20140515
  Serious: Yes (Other)
  Sender: FDA-Public Use
  Company Number: AT-ABBOTT-13X-009-1134792-00

PATIENT
  Age: 49 Year
  Sex: Male
  Weight: 95 kg

DRUGS (4)
  1. LIPCOR [Suspect]
     Indication: PRODUCT USED FOR UNKNOWN INDICATION
     Dosage: 1-0-0
     Dates: start: 20130704, end: 20130807
  2. INDAPAMIDE [Concomitant]
     Indication: PRODUCT USED FOR UNKNOWN INDICATION
  3. THROMBO ASS [Concomitant]
     Indication: PRODUCT USED FOR UNKNOWN INDICATION
  4. NITROGLYCERIN [Concomitant]
     Indication: PRODUCT USED FOR UNKNOWN INDICATION

REACTIONS (4)
  - Coronary artery disease [Unknown]
  - Myalgia [Recovered/Resolved]
  - Blood creatine phosphokinase increased [Recovered/Resolved]
  - Cardiovascular disorder [Unknown]
